FAERS Safety Report 4767733-9 (Version None)
Quarter: 2005Q3

REPORT INFORMATION
  Report Type: 
  Country: None (occurrence: None)
  Receive Date: 20050912
  Receipt Date: 20050901
  Transmission Date: 20060218
  Serious: Yes (Death, Other)
  Sender: FDA-Public Use
  Company Number: 2005-08-1801

PATIENT
  Age: 70 Year
  Sex: Female

DRUGS (2)
  1. IODINE SOLUTION ORAL SOLUTION [Suspect]
     Dosage: ORAL
     Route: 048
  2. DIPROSONE [Suspect]
     Dosage: ORAL
     Route: 048

REACTIONS (36)
  - ACUTE RESPIRATORY DISTRESS SYNDROME [None]
  - ANION GAP INCREASED [None]
  - ANURIA [None]
  - ASCITES [None]
  - ASPARTATE AMINOTRANSFERASE INCREASED [None]
  - BLOOD CREATININE INCREASED [None]
  - BLOOD LACTATE DEHYDROGENASE INCREASED [None]
  - BLOOD PRESSURE SYSTOLIC INCREASED [None]
  - COUGH [None]
  - DIARRHOEA [None]
  - GASTROINTESTINAL NECROSIS [None]
  - HAEMODIALYSIS [None]
  - HYPOTENSION [None]
  - HYPOXIA [None]
  - INCORRECT ROUTE OF DRUG ADMINISTRATION [None]
  - INFLAMMATION [None]
  - LARYNGEAL DISORDER [None]
  - LARYNGEAL OEDEMA [None]
  - LARYNGEAL ULCERATION [None]
  - METABOLIC ACIDOSIS [None]
  - MULTI-ORGAN FAILURE [None]
  - NECROSIS [None]
  - OESOPHAGEAL DISORDER [None]
  - OLIGURIA [None]
  - OVERDOSE [None]
  - OXYGEN SATURATION DECREASED [None]
  - PNEUMONITIS CHEMICAL [None]
  - PULMONARY OEDEMA [None]
  - RENAL FAILURE [None]
  - RENAL TUBULAR DISORDER [None]
  - RESPIRATORY DISTRESS [None]
  - RHABDOMYOLYSIS [None]
  - SWELLING [None]
  - TACHYCARDIA [None]
  - TACHYPNOEA [None]
  - TRACHEAL ULCER [None]
